FAERS Safety Report 4478542-2 (Version None)
Quarter: 2004Q4

REPORT INFORMATION
  Report Type: 
  Country: None (occurrence: None)
  Receive Date: 20041014
  Receipt Date: 20040720
  Transmission Date: 20050328
  Serious: Yes (Hospitalization, Other)
  Sender: FDA-Public Use
  Company Number: ATO-04-0650

PATIENT
  Age: 53 Year
  Sex: Male
  Weight: 87 kg

DRUGS (14)
  1. TRISENOX [Suspect]
     Indication: ACUTE PROMYELOCYTIC LEUKAEMIA
     Dosage: SEE IMAGE
     Route: 042
     Dates: start: 20040320, end: 20040415
  2. TRISENOX [Suspect]
     Indication: ACUTE PROMYELOCYTIC LEUKAEMIA
     Dosage: SEE IMAGE
     Route: 042
     Dates: start: 20040419, end: 20040514
  3. TRISENOX [Suspect]
     Indication: ACUTE PROMYELOCYTIC LEUKAEMIA
     Dosage: SEE IMAGE
     Route: 042
     Dates: start: 20040614, end: 20040629
  4. TRETINOIN [Suspect]
     Indication: ACUTE PROMYELOCYTIC LEUKAEMIA
     Dosage: 2X/DAY, ORAL
     Route: 048
  5. LOPID [Concomitant]
  6. ZESFERIL [Concomitant]
  7. LIPITOR [Concomitant]
  8. TOPROLOL [Concomitant]
  9. GLUCOROL [Concomitant]
  10. GLUCOPHAGE [Concomitant]
  11. FLONASE [Concomitant]
  12. ASPIRIN [Concomitant]
  13. PREDNISONE [Concomitant]
  14. VIOXX [Concomitant]

REACTIONS (7)
  - CHEST PAIN [None]
  - ELECTROCARDIOGRAM QT PROLONGED [None]
  - ELECTROCARDIOGRAM ST-T CHANGE [None]
  - TOOTH ABSCESS [None]
  - URINARY TRACT INFECTION [None]
  - VENTRICULAR HYPERTROPHY [None]
  - VENTRICULAR TACHYCARDIA [None]
